FAERS Safety Report 9408420 (Version 2)
Quarter: 2013Q4

REPORT INFORMATION
  Report Type: Spontaneous
  Country: US (occurrence: US)
  Receive Date: 20130718
  Receipt Date: 20131108
  Transmission Date: 20140711
  Serious: Yes (Hospitalization)
  Sender: FDA-Public Use
  Company Number: US-GLAXOSMITHKLINE-A1032660A

PATIENT
  Age: 51 Year
  Sex: Female

DRUGS (23)
  1. BENLYSTA [Suspect]
     Indication: SYSTEMIC LUPUS ERYTHEMATOSUS
     Dosage: 120MG EVERY 28 DAYS
     Route: 042
     Dates: start: 20130201, end: 20130913
  2. PREDNISONE [Concomitant]
  3. NEURONTIN [Concomitant]
  4. CALTRATE [Concomitant]
  5. ZYRTEC [Concomitant]
  6. VITAMIN D [Concomitant]
  7. TRAMADOL [Concomitant]
  8. VITAMIN E [Concomitant]
  9. TOPROL [Concomitant]
  10. SYNTHROID [Concomitant]
  11. SINGULAIR [Concomitant]
  12. PLAQUENIL [Concomitant]
  13. NOVOLOG [Concomitant]
  14. NEXIUM [Concomitant]
  15. LOSARTAN [Concomitant]
  16. JANUMET [Concomitant]
  17. HYDROCHLOROTHIAZIDE [Concomitant]
  18. GLUCOSAMINE CHONDROITIN [Concomitant]
  19. FERROUS SULFATE [Concomitant]
  20. COUMADIN [Concomitant]
  21. OMEGA-3 [Concomitant]
  22. MAGNESIUM [Concomitant]
  23. BETAMETHASONE CLOTRIMAZOLE [Concomitant]

REACTIONS (7)
  - Eye abscess [Recovered/Resolved]
  - Breast enlargement [Recovered/Resolved]
  - Breast discolouration [Recovered/Resolved]
  - Erythema [Recovered/Resolved]
  - Infection [Unknown]
  - Lymph gland infection [Recovered/Resolved]
  - Skin infection [Recovered/Resolved]
